FAERS Safety Report 7978675-X (Version None)
Quarter: 2011Q4

REPORT INFORMATION
  Report Type: 
  Country: None (occurrence: None)
  Receive Date: 20111202
  Receipt Date: 20111122
  Transmission Date: 20120403
  Serious: Yes (Other)
  Sender: FDA-Public Use
  Company Number: 2011SP054888

PATIENT
  Age: 9 Year
  Sex: Female

DRUGS (1)
  1. INTERFERON ALFA [Suspect]
     Indication: MALIGNANT MELANOMA
     Dosage: IV
     Route: 042
     Dates: start: 19980101

REACTIONS (2)
  - COGNITIVE DISORDER [None]
  - AMNESIA [None]
